FAERS Safety Report 14280553 (Version 1)
Quarter: 2017Q4

REPORT INFORMATION
  Report Type: Report from Study
  Country: None (occurrence: RO)
  Receive Date: 20171212
  Receipt Date: 20171212
  Transmission Date: 20180321
  Serious: Yes (Hospitalization)
  Sender: FDA-Public Use
  Company Number: RO-ABBVIE-17K-135-2190878-00

PATIENT
  Age: 61 Year
  Sex: Male

DRUGS (1)
  1. DUODOPA [Suspect]
     Active Substance: CARBIDOPA\LEVODOPA
     Indication: PARKINSON^S DISEASE
     Dosage: MD=10.00??CD=4.00??ED=2.00
     Route: 050
     Dates: start: 20140917

REACTIONS (5)
  - Abdominal pain [Recovered/Resolved]
  - Chronic gastritis [Not Recovered/Not Resolved]
  - Medical device site granuloma [Recovering/Resolving]
  - Duodenal ulcer [Recovering/Resolving]
  - Constipation [Recovering/Resolving]

NARRATIVE: CASE EVENT DATE: 20171211
